FAERS Safety Report 7233244-4 (Version None)
Quarter: 2011Q1

REPORT INFORMATION
  Report Type: 
  Country: None (occurrence: None)
  Receive Date: 20110119
  Receipt Date: 20110112
  Transmission Date: 20110831
  Serious: Yes (Hospitalization)
  Sender: FDA-Public Use
  Company Number: B0687498A

PATIENT
  Sex: Female

DRUGS (8)
  1. MYSLEE [Suspect]
     Indication: INSOMNIA
     Dosage: 5MG PER DAY
     Route: 048
     Dates: start: 20040703
  2. DEPAS [Suspect]
     Indication: NEUROSIS
     Dosage: 1MG PER DAY
     Route: 048
     Dates: start: 20040703
  3. VALTREX [Suspect]
     Indication: HERPES ZOSTER
     Dosage: 3000MG PER DAY
     Route: 048
     Dates: start: 20101126, end: 20101129
  4. BLOPRESS [Suspect]
     Indication: HYPERTENSION
     Dosage: 8MG PER DAY
     Route: 048
     Dates: start: 20040927
  5. LIPITOR [Suspect]
     Indication: HYPERLIPIDAEMIA
     Dosage: 5MG PER DAY
     Route: 048
     Dates: start: 20100323
  6. LOXONIN [Suspect]
     Indication: PAIN
     Route: 048
     Dates: start: 20101126, end: 20101129
  7. CALBLOCK [Suspect]
     Indication: HYPERTENSION
     Dosage: 16MG PER DAY
     Route: 048
     Dates: start: 20091106
  8. GASTER [Suspect]
     Indication: PRODUCT USED FOR UNKNOWN INDICATION
     Route: 048

REACTIONS (4)
  - MALAISE [None]
  - RENAL FAILURE [None]
  - DIZZINESS [None]
  - NAUSEA [None]
